FAERS Safety Report 6461117-3 (Version None)
Quarter: 2009Q4

REPORT INFORMATION
  Report Type: 
  Country: None (occurrence: None)
  Receive Date: 20091130
  Receipt Date: 20091124
  Transmission Date: 20100525
  Serious: Yes (Other)
  Sender: FDA-Public Use
  Company Number: D0064656A

PATIENT

DRUGS (1)
  1. ARIXTRA [Suspect]
     Dosage: .25MG PER DAY
     Route: 058

REACTIONS (2)
  - HAEMORRHAGE [None]
  - OFF LABEL USE [None]
